FAERS Safety Report 4283295-7 (Version None)
Quarter: 2004Q1

REPORT INFORMATION
  Report Type: 
  Country: None (occurrence: None)
  Receive Date: 20040129
  Receipt Date: 20040115
  Transmission Date: 20041129
  Serious: Yes (Hospitalization)
  Sender: FDA-Public Use
  Company Number: 2004003778

PATIENT
  Sex: Female

DRUGS (2)
  1. NEURONTIN [Suspect]
     Indication: PREOPERATIVE CARE
     Dosage: 2600 MG (BID)
     Dates: start: 20010301
  2. HYDROCORTISONE [Concomitant]

REACTIONS (4)
  - BLOOD PRESSURE DECREASED [None]
  - HEADACHE [None]
  - SOMNOLENCE [None]
  - WEIGHT INCREASED [None]
